FAERS Safety Report 11921524 (Version 1)
Quarter: 2016Q1

REPORT INFORMATION
  Report Type: Spontaneous
  Country: US (occurrence: US)
  Receive Date: 20160115
  Receipt Date: 20160115
  Transmission Date: 20160526
  Serious: No
  Sender: FDA-Public Use
  Company Number: US-TAKEDA-2016TUS000614

PATIENT
  Sex: Male
  Weight: 78.2 kg

DRUGS (9)
  1. CENTRUM SILVER                     /02363801/ [Suspect]
     Active Substance: MINERALS\VITAMINS
     Indication: EYE DISORDER
  2. CENTRUM SILVER                     /02363801/ [Suspect]
     Active Substance: MINERALS\VITAMINS
     Indication: MUSCLE DISORDER
  3. HYDROCODONE BITARTRATE AND ACETAMINOPHEN [Suspect]
     Active Substance: ACETAMINOPHEN\HYDROCODONE BITARTRATE
     Indication: BACK PAIN
     Dosage: 7.5/325 MG, TID
     Route: 048
     Dates: start: 200406
  4. AMLODIPINE [Concomitant]
     Active Substance: AMLODIPINE BESYLATE
     Indication: BLOOD PRESSURE INCREASED
     Dosage: 5 MG, QD
     Route: 048
  5. CENTRUM SILVER                     /02363801/ [Suspect]
     Active Substance: MINERALS\VITAMINS
     Indication: CARDIAC DISORDER
     Dosage: UNK, QD
     Route: 048
     Dates: start: 2015, end: 2015
  6. DEXILANT [Suspect]
     Active Substance: DEXLANSOPRAZOLE
     Indication: GASTROOESOPHAGEAL REFLUX DISEASE
     Dosage: 60 MG, QD
     Route: 065
  7. CENTRUM SILVER                     /02363801/ [Suspect]
     Active Substance: MINERALS\VITAMINS
     Indication: CEREBRAL DISORDER
  8. TORADOL [Concomitant]
     Active Substance: KETOROLAC TROMETHAMINE
     Indication: BACK PAIN
     Dosage: 2 ML, UNK
     Route: 065
     Dates: start: 2008
  9. LISINOPRIL. [Concomitant]
     Active Substance: LISINOPRIL
     Dosage: 20 MG, QD
     Route: 048

REACTIONS (1)
  - Drug effect decreased [Unknown]
